FAERS Safety Report 11071539 (Version 2)
Quarter: 2015Q2

REPORT INFORMATION
  Report Type: Spontaneous
  Country: US (occurrence: None)
  Receive Date: 20150424
  Receipt Date: 20150625
  Transmission Date: 20150821
  Serious: Yes (Other)
  Sender: FDA-Public Use
  Company Number: ADR-2015-00784

PATIENT
  Age: 69 Year
  Sex: Female

DRUGS (1)
  1. LIORESAL [Suspect]
     Active Substance: BACLOFEN
     Indication: MUSCLE SPASTICITY
     Dosage: 142 OR 146^?

REACTIONS (6)
  - Pain in extremity [None]
  - Arachnoiditis [None]
  - Fall [None]
  - Loss of control of legs [None]
  - Back pain [None]
  - Nervous system disorder [None]
